FAERS Safety Report 26138973 (Version 1)
Quarter: 2025Q4

REPORT INFORMATION
  Report Type: Spontaneous
  Country: US (occurrence: US)
  Receive Date: 20251210
  Receipt Date: 20251210
  Transmission Date: 20260118
  Serious: Yes (Hospitalization)
  Sender: NOVARTIS
  Company Number: US-002147023-NVSC2025US188125

PATIENT
  Age: 78 Year
  Sex: Male

DRUGS (1)
  1. ASCIMINIB [Suspect]
     Active Substance: ASCIMINIB
     Indication: Chronic myeloid leukaemia
     Dosage: 80 MG, QD
     Route: 048

REACTIONS (5)
  - Nervous system disorder [Recovering/Resolving]
  - Brain fog [Recovering/Resolving]
  - Gait disturbance [Recovering/Resolving]
  - Memory impairment [Recovering/Resolving]
  - Aphasia [Recovering/Resolving]
